FAERS Safety Report 4596552-1 (Version None)
Quarter: 2005Q1

REPORT INFORMATION
  Report Type: 
  Country: None (occurrence: None)
  Receive Date: 20050228
  Receipt Date: 20050219
  Transmission Date: 20050727
  Serious: Yes (Hospitalization, Other)
  Sender: FDA-Public Use
  Company Number: 2005-02-1453

PATIENT
  Age: 77 Year
  Sex: Male

DRUGS (9)
  1. INTERFERON ALFA -2B [Suspect]
     Indication: HAIRY CELL LEUKAEMIA
     Dosage: 5 MIU
     Dates: start: 19840101, end: 19970101
  2. INTERFERON ALFA- 2A [Suspect]
     Indication: HAIRY CELL LEUKAEMIA
     Dosage: 4.5 MIU TIW INTRAMUSCULAR
     Route: 030
     Dates: start: 19970101
  3. PRAMIPEXOLE [Concomitant]
  4. L-DOPA [Concomitant]
  5. CABERGOLINE [Concomitant]
  6. DILTIAZEM [Concomitant]
  7. MOLSIDOMINE [Concomitant]
  8. FINASTERIDE [Concomitant]
  9. ALLOPURINOL [Concomitant]

REACTIONS (25)
  - ANGINA PECTORIS [None]
  - ASTHENIA [None]
  - BONE MARROW TUMOUR CELL INFILTRATION [None]
  - BORRELIA BURGDORFERI SEROLOGY POSITIVE [None]
  - CAROTID ARTERY ATHEROMA [None]
  - CEREBELLAR SYNDROME [None]
  - CEREBROVASCULAR DISORDER [None]
  - EXTENSOR PLANTAR RESPONSE [None]
  - GAIT DISTURBANCE [None]
  - HYPERACUSIS [None]
  - HYPERREFLEXIA [None]
  - HYPOAESTHESIA [None]
  - HYPOREFLEXIA [None]
  - INTERVERTEBRAL DISC DISORDER [None]
  - LEUKOENCEPHALOPATHY [None]
  - MYALGIA [None]
  - MYOCARDIAL INFARCTION [None]
  - OSTEOCHONDROSIS [None]
  - POLYNEUROPATHY [None]
  - PYRAMIDAL TRACT SYNDROME [None]
  - RESTLESS LEGS SYNDROME [None]
  - SENSORY DISTURBANCE [None]
  - SPINAL OSTEOARTHRITIS [None]
  - THROMBOCYTOPENIA [None]
  - VERTIGO [None]
